FAERS Safety Report 26145750 (Version 1)
Quarter: 2025Q4

REPORT INFORMATION
  Report Type: Spontaneous
  Country: CN (occurrence: CN)
  Receive Date: 20251211
  Receipt Date: 20251211
  Transmission Date: 20260117
  Serious: Yes (Hospitalization, Other)
  Sender: NOVARTIS
  Company Number: CN-002147023-NVSC2025CN188613

PATIENT
  Age: 73 Year
  Sex: Male
  Weight: 60 kg

DRUGS (2)
  1. TRAMETINIB [Suspect]
     Active Substance: TRAMETINIB
     Indication: Neoplasm
     Dosage: 2.000 MG, QD
     Route: 048
     Dates: start: 20250121, end: 20251125
  2. DABRAFENIB [Suspect]
     Active Substance: DABRAFENIB
     Indication: Neoplasm
     Dosage: 150.000 MG, BID
     Route: 048
     Dates: start: 20250121, end: 20251125

REACTIONS (8)
  - Dermatitis exfoliative generalised [Recovering/Resolving]
  - Erythema [Recovering/Resolving]
  - Skin exfoliation [Recovering/Resolving]
  - Rash pruritic [Unknown]
  - Skin exfoliation [Unknown]
  - Pruritus [Unknown]
  - Papule [Unknown]
  - Skin plaque [Unknown]

NARRATIVE: CASE EVENT DATE: 20250501
